FAERS Safety Report 5083480-0 (Version None)
Quarter: 2006Q3

REPORT INFORMATION
  Report Type: 
  Country: None (occurrence: None)
  Receive Date: 20060818
  Receipt Date: 20060817
  Transmission Date: 20061208
  Serious: Yes (Other)
  Sender: FDA-Public Use
  Company Number: US-GLAXOSMITHKLINE-A0617057A

PATIENT
  Age: 56 Year
  Sex: Male

DRUGS (1)
  1. ABREVA [Suspect]
     Indication: APHTHOUS STOMATITIS
     Route: 061
     Dates: end: 20060817

REACTIONS (6)
  - ANGIONEUROTIC OEDEMA [None]
  - DRUG ADMINISTRATION ERROR [None]
  - HYPERSENSITIVITY [None]
  - SPEECH DISORDER [None]
  - SWELLING FACE [None]
  - SWOLLEN TONGUE [None]
